FAERS Safety Report 15579524 (Version 1)
Quarter: 2018Q4

REPORT INFORMATION
  Report Type: Spontaneous
  Country: FR (occurrence: FR)
  Receive Date: 20181102
  Receipt Date: 20181102
  Transmission Date: 20190205
  Serious: Yes (Other)
  Sender: FDA-Public Use
  Company Number: FR-PFIZER INC-2018441218

PATIENT
  Age: 69 Year
  Sex: Male

DRUGS (5)
  1. METHYLPREDNISOLONE. [Suspect]
     Active Substance: METHYLPREDNISOLONE
     Indication: HODGKIN^S DISEASE
     Dosage: 240 MG, UNK
     Route: 048
     Dates: start: 20170914, end: 20171228
  2. DACARBAZINE. [Suspect]
     Active Substance: DACARBAZINE
     Indication: HODGKIN^S DISEASE
     Dosage: 760 MG, UNK
     Route: 042
     Dates: start: 20170914, end: 20171228
  3. VINBLASTINE SULFATE. [Suspect]
     Active Substance: VINBLASTINE SULFATE
     Indication: HODGKIN^S DISEASE
     Dosage: 12.2 MG, UNK
     Route: 042
     Dates: start: 20170914, end: 20170928
  4. DOXORUBICIN HCL [Suspect]
     Active Substance: DOXORUBICIN HYDROCHLORIDE
     Indication: HODGKIN^S DISEASE
     Dosage: 51 MG, UNK
     Route: 042
     Dates: start: 20170914, end: 20171228
  5. BLEOMYCIN [Suspect]
     Active Substance: BLEOMYCIN SULFATE
     Indication: HODGKIN^S DISEASE
     Dosage: 20.3 MG, UNK
     Route: 042
     Dates: start: 20170914, end: 20171228

REACTIONS (1)
  - Scleroderma [Not Recovered/Not Resolved]

NARRATIVE: CASE EVENT DATE: 201805
